FAERS Safety Report 7957097-1 (Version None)
Quarter: 2011Q4

REPORT INFORMATION
  Report Type: 
  Country: None (occurrence: None)
  Receive Date: 20111205
  Receipt Date: 20111129
  Transmission Date: 20120403
  Serious: Yes (Other)
  Sender: FDA-Public Use
  Company Number: PL-GENZYME-THYM-1002323

PATIENT
  Age: 6 Month
  Sex: Male

DRUGS (12)
  1. CYCLOPHOSPHAMIDE [Concomitant]
     Indication: BONE MARROW CONDITIONING REGIMEN
  2. PREDNISOLONE [Concomitant]
     Indication: IMMUNOSUPPRESSION
  3. CYCLOSPORINE [Concomitant]
     Indication: PROPHYLAXIS AGAINST GRAFT VERSUS HOST DISEASE
  4. IMMUNE GLOBULIN NOS [Concomitant]
     Indication: PRODUCT USED FOR UNKNOWN INDICATION
     Route: 042
  5. ANTI-THYMOCYTE GLOBULIN NOS [Suspect]
     Indication: ACUTE GRAFT VERSUS HOST DISEASE
  6. ANTI-THYMOCYTE GLOBULIN NOS [Suspect]
     Indication: BONE MARROW CONDITIONING REGIMEN
     Route: 065
  7. ANTIBIOTICS [Concomitant]
     Indication: ANTI-INFECTIVE THERAPY
  8. MYCOPHENOLATE MOFETIL [Concomitant]
     Indication: IMMUNOSUPPRESSION
  9. ANTIVIRALS NOS [Concomitant]
     Indication: VIRAL INFECTION
  10. ANTIFUNGALS [Concomitant]
     Indication: FUNGAL INFECTION
  11. TACROLIMUS [Concomitant]
     Indication: IMMUNOSUPPRESSION
  12. TREOSULFAN [Concomitant]
     Indication: BONE MARROW CONDITIONING REGIMEN

REACTIONS (13)
  - ACUTE GRAFT VERSUS HOST DISEASE IN SKIN [None]
  - SPLENOMEGALY [None]
  - CHOLESTASIS [None]
  - PORTAL VEIN THROMBOSIS [None]
  - COLLATERAL CIRCULATION [None]
  - CYTOMEGALOVIRUS HEPATITIS [None]
  - ACUTE GRAFT VERSUS HOST DISEASE IN LIVER [None]
  - VANISHING BILE DUCT SYNDROME [None]
  - GASTROINTESTINAL HAEMORRHAGE [None]
  - ACUTE GRAFT VERSUS HOST DISEASE IN INTESTINE [None]
  - ACUTE GRAFT VERSUS HOST DISEASE [None]
  - PLATELET COUNT DECREASED [None]
  - LIVER TRANSPLANT [None]
